FAERS Safety Report 10068431 (Version 3)
Quarter: 2014Q3

REPORT INFORMATION
  Report Type: Report from Study
  Country: CN (occurrence: CN)
  Receive Date: 20140409
  Receipt Date: 20140821
  Transmission Date: 20150326
  Serious: Yes (Hospitalization, Other)
  Sender: FDA-Public Use
  Company Number: CN-BAYER-2014-046006

PATIENT
  Age: 45 Year
  Sex: Female

DRUGS (3)
  1. NEXAVAR [Suspect]
     Active Substance: SORAFENIB
     Indication: HEPATIC CANCER STAGE IV
     Dosage: 400 MG, BID
     Dates: start: 20140311, end: 20140321
  2. NEXAVAR [Suspect]
     Active Substance: SORAFENIB
     Indication: METASTASES TO BONE
  3. NEXAVAR [Suspect]
     Active Substance: SORAFENIB
     Indication: METASTASES TO LYMPH NODES
     Dosage: 400 MG, BID
     Dates: start: 20140328, end: 20140328

REACTIONS (5)
  - Anaphylactic shock [None]
  - Anaphylactic shock [None]
  - Pyrexia [None]
  - Rash [None]
  - Rash [None]

NARRATIVE: CASE EVENT DATE: 201403
